FAERS Safety Report 13953080 (Version 1)
Quarter: 2017Q3

REPORT INFORMATION
  Report Type: Report from Study
  Country: US (occurrence: US)
  Receive Date: 20170911
  Receipt Date: 20170911
  Transmission Date: 20171128
  Serious: Yes (Other)
  Sender: FDA-Public Use
  Company Number: US-ROCHE-1987574

PATIENT
  Sex: Male
  Weight: 90.8 kg

DRUGS (12)
  1. COQ-10 [Concomitant]
     Dosage: TAKING FOR A FEW YEARS ;ONGOING: YES
     Route: 048
  2. ESBRIET [Suspect]
     Active Substance: PIRFENIDONE
     Indication: IDIOPATHIC PULMONARY FIBROSIS
     Dosage: 3 CAPSULES 3 TIMES A DAY ;ONGOING: YES
     Route: 048
     Dates: start: 20151024
  3. VITAMIN D3 [Concomitant]
     Active Substance: CHOLECALCIFEROL
     Dosage: TAKING A FEW YEARS ;ONGOING: YES
     Route: 048
  4. PROAIR (UNITED STATES) [Concomitant]
     Indication: IDIOPATHIC PULMONARY FIBROSIS
     Dosage: 2 PUFFS ONCE A DAY AFTER EXERCISING ;ONGOING: YES
     Route: 055
  5. SIMVASTATIN. [Concomitant]
     Active Substance: SIMVASTATIN
     Indication: BLOOD CHOLESTEROL
     Dosage: TAKING FOR A FEW YEARS ;ONGOING: YES
     Route: 048
  6. OMEPRAZOLE. [Concomitant]
     Active Substance: OMEPRAZOLE
     Indication: GASTROOESOPHAGEAL REFLUX DISEASE
     Dosage: TAKING SEVERAL YEARS ;ONGOING: YES
     Route: 048
  7. LIDODERM [Concomitant]
     Active Substance: LIDOCAINE
     Route: 065
  8. TAMSULOSIN [Concomitant]
     Active Substance: TAMSULOSIN
     Route: 065
  9. AMLODIPINE [Concomitant]
     Active Substance: AMLODIPINE BESYLATE
     Indication: BLOOD PRESSURE MEASUREMENT
     Dosage: RECENTLY INCREASED DOSE, TAKING 5MG DOSE FOR YEARS ;ONGOING: YES
     Route: 048
  10. FLUTICASONE. [Concomitant]
     Active Substance: FLUTICASONE
     Route: 045
  11. AMLODIPINE [Concomitant]
     Active Substance: AMLODIPINE BESYLATE
     Dosage: ONGOING: NO
     Route: 065
  12. GABAPENTIN. [Concomitant]
     Active Substance: GABAPENTIN
     Indication: BACK PAIN
     Dosage: TAKING ABOUT 3 YEARS ;ONGOING: YES
     Route: 048

REACTIONS (3)
  - Hypertension [Recovering/Resolving]
  - Fatigue [Recovered/Resolved with Sequelae]
  - Back pain [Recovering/Resolving]

NARRATIVE: CASE EVENT DATE: 2017
